FAERS Safety Report 16107254 (Version 1)
Quarter: 2019Q1

REPORT INFORMATION
  Report Type: Spontaneous
  Country: US (occurrence: US)
  Receive Date: 20190322
  Receipt Date: 20190322
  Transmission Date: 20190418
  Serious: No
  Sender: FDA-Public Use
  Company Number: US-SA-2019SA076781

PATIENT
  Sex: Male

DRUGS (1)
  1. PRALUENT [Suspect]
     Active Substance: ALIROCUMAB
     Indication: CEREBRAL INFARCTION
     Dosage: 75 MG, QOW
     Route: 058

REACTIONS (2)
  - Device issue [Unknown]
  - Product dose omission [Unknown]
